FAERS Safety Report 8348090-8 (Version None)
Quarter: 2012Q2

REPORT INFORMATION
  Report Type: 
  Country: None (occurrence: None)
  Receive Date: 20120509
  Receipt Date: 20120424
  Transmission Date: 20120825
  Serious: Yes (Other)
  Sender: FDA-Public Use
  Company Number: US-FRI-1000030398

PATIENT
  Age: 38 Year
  Sex: Male

DRUGS (3)
  1. ESCITALOPRAM [Suspect]
     Indication: ANXIETY
     Dosage: 5 MG
     Dates: start: 20120405, end: 20120412
  2. XANAX [Suspect]
     Indication: ANXIETY
     Dosage: 0.5 MG
  3. HUMIRA [Suspect]
     Indication: PSORIASIS
     Dosage: 40 MG/0.8 ML PEN
     Dates: start: 20120310, end: 20120423

REACTIONS (18)
  - ARTHRALGIA [None]
  - ABDOMINAL PAIN UPPER [None]
  - DRUG INEFFECTIVE [None]
  - EYE SWELLING [None]
  - SWOLLEN TONGUE [None]
  - PRURITUS [None]
  - CHOKING SENSATION [None]
  - DIZZINESS [None]
  - NAUSEA [None]
  - ANXIETY [None]
  - PHARYNGEAL OEDEMA [None]
  - BURNING SENSATION [None]
  - NECK PAIN [None]
  - DYSPNOEA [None]
  - PSORIASIS [None]
  - SWELLING FACE [None]
  - HEADACHE [None]
  - PANIC ATTACK [None]
